FAERS Safety Report 13563183 (Version 2)
Quarter: 2017Q2

REPORT INFORMATION
  Report Type: Spontaneous
  Country: JP (occurrence: JP)
  Receive Date: 20170519
  Receipt Date: 20170609
  Transmission Date: 20170830
  Serious: Yes (Other)
  Sender: FDA-Public Use
  Company Number: JP-ELI_LILLY_AND_COMPANY-JP201705000668

PATIENT
  Age: 81 Year
  Sex: Male

DRUGS (3)
  1. BETANIS [Concomitant]
     Active Substance: MIRABEGRON
     Indication: PRODUCT USED FOR UNKNOWN INDICATION
     Dosage: UNK
     Route: 048
  2. URIEF [Concomitant]
     Active Substance: SILODOSIN
     Indication: PRODUCT USED FOR UNKNOWN INDICATION
     Dosage: UNK
     Route: 048
  3. ZALUTIA [Suspect]
     Active Substance: TADALAFIL
     Indication: PRODUCT USED FOR UNKNOWN INDICATION
     Dosage: 5 MG, DAILY
     Route: 048
     Dates: start: 201404, end: 20170428

REACTIONS (5)
  - Constipation [Recovering/Resolving]
  - Prostatic specific antigen decreased [Recovering/Resolving]
  - Urinary retention [Recovering/Resolving]
  - Haemorrhoids [Unknown]
  - Pollakiuria [Unknown]

NARRATIVE: CASE EVENT DATE: 2016
